FAERS Safety Report 4565703-7 (Version None)
Quarter: 2005Q1

REPORT INFORMATION
  Report Type: 
  Country: None (occurrence: None)
  Receive Date: 20050131
  Receipt Date: 20040218
  Transmission Date: 20050727
  Serious: Yes (Death)
  Sender: FDA-Public Use
  Company Number: US-NOVOPROD-235451

PATIENT
  Age: 36 Year
  Sex: Male

DRUGS (5)
  1. NOVOSEVEN [Suspect]
     Indication: TRAUMATIC HAEMORRHAGE
     Dosage: 120 UG/KG, SINGLE
     Route: 042
     Dates: start: 20030801
  2. RED BLOOD CELLS [Concomitant]
     Indication: TRAUMATIC HAEMORRHAGE
     Dosage: 25 UNITS
     Route: 042
     Dates: start: 20030803, end: 20030901
  3. FRESH FROZEN PLASMA [Concomitant]
     Indication: TRAUMATIC HAEMORRHAGE
     Route: 042
     Dates: start: 20030803, end: 20030901
  4. PLATELETS [Concomitant]
     Indication: TRAUMATIC HAEMORRHAGE
     Dates: start: 20030803, end: 20030901
  5. ANTIHAEMOPHILES KRYOPRAEZIPITAT [Concomitant]
     Indication: TRAUMATIC HAEMORRHAGE

REACTIONS (3)
  - CEREBRAL INFARCTION [None]
  - CEREBRAL ISCHAEMIA [None]
  - CEREBROVASCULAR ACCIDENT [None]
